FAERS Safety Report 7986557-2 (Version None)
Quarter: 2011Q4

REPORT INFORMATION
  Report Type: 
  Country: None (occurrence: None)
  Receive Date: 20111216
  Receipt Date: 20111207
  Transmission Date: 20120403
  Serious: Yes (Other)
  Sender: FDA-Public Use
  Company Number: US-JNJFOC-20111203715

PATIENT
  Sex: Male
  Weight: 77.57 kg

DRUGS (12)
  1. FOLIC ACID [Concomitant]
  2. PREDNISONE [Concomitant]
  3. MEXITIL [Concomitant]
     Indication: ARRHYTHMIA PROPHYLAXIS
  4. AMLODIPINE [Concomitant]
  5. POTASSIUM CHLORIDE [Concomitant]
  6. LEFLUNOMIDE [Concomitant]
  7. HYDROCODONE BITARTRATE + ACETAMINOPHEN [Concomitant]
  8. OMEPRAZOLE [Concomitant]
  9. METHOTREXATE [Concomitant]
  10. REMICADE [Suspect]
     Indication: OSTEOARTHRITIS
     Route: 042
     Dates: start: 20110817, end: 20111121
  11. REMICADE [Suspect]
     Indication: RHEUMATOID ARTHRITIS
     Route: 042
     Dates: start: 20110817, end: 20111121
  12. ALLOPURINOL [Concomitant]

REACTIONS (3)
  - HEPATOTOXICITY [None]
  - VENTRICULAR TACHYCARDIA [None]
  - CARDIAC FAILURE CONGESTIVE [None]
